FAERS Safety Report 4600542-X (Version None)
Quarter: 2005Q1

REPORT INFORMATION
  Report Type: 
  Country: None (occurrence: None)
  Receive Date: 20050304
  Receipt Date: 20050219
  Transmission Date: 20050727
  Serious: Yes (Hospitalization, Other)
  Sender: FDA-Public Use
  Company Number: 2005034613

PATIENT
  Age: 83 Year
  Sex: Male
  Weight: 65.7716 kg

DRUGS (3)
  1. VIAGRA [Suspect]
     Indication: ERECTILE DYSFUNCTION
     Dosage: ORAL
     Route: 048
  2. DILANTIN [Suspect]
     Indication: ILL-DEFINED DISORDER
  3. BENZYLPENICILLIN (BENZYLPENICILLIN) [Suspect]
     Indication: ILL-DEFINED DISORDER

REACTIONS (8)
  - DRUG HYPERSENSITIVITY [None]
  - DRUG INEFFECTIVE [None]
  - FALL [None]
  - HYPOACUSIS [None]
  - IMPAIRED HEALING [None]
  - INFECTION [None]
  - MEDICATION ERROR [None]
  - SKIN LACERATION [None]
